FAERS Safety Report 6432468-3 (Version None)
Quarter: 2009Q4

REPORT INFORMATION
  Report Type: 
  Country: None (occurrence: None)
  Receive Date: 20091109
  Receipt Date: 20091030
  Transmission Date: 20100525
  Serious: Yes (Hospitalization)
  Sender: FDA-Public Use
  Company Number: FR-AMGEN-QUU372184

PATIENT
  Sex: Male

DRUGS (12)
  1. ARANESP [Suspect]
     Indication: RENAL FAILURE CHRONIC
     Route: 058
     Dates: start: 20090611, end: 20090817
  2. TRACLEER [Concomitant]
     Dates: start: 20090301
  3. PREVISCAN [Concomitant]
  4. TRIATEC [Concomitant]
  5. MONO-TILDIEM - SLOW RELEASE [Concomitant]
  6. NEXIUM [Concomitant]
  7. SPECIAFOLDINE [Concomitant]
  8. TOPAAL [Concomitant]
  9. XANAX [Concomitant]
  10. LASILIX [Concomitant]
  11. CORTANCYL [Concomitant]
  12. TARDYFERON [Concomitant]
     Dates: start: 20090724, end: 20090904

REACTIONS (1)
  - POLYCYTHAEMIA [None]
